FAERS Safety Report 6443394-8 (Version None)
Quarter: 2009Q4

REPORT INFORMATION
  Report Type: 
  Country: None (occurrence: None)
  Receive Date: 20091117
  Receipt Date: 20091106
  Transmission Date: 20100525
  Serious: Yes (Other)
  Sender: FDA-Public Use
  Company Number: US-PFIZER INC-2009295074

PATIENT
  Sex: Female

DRUGS (1)
  1. DETROL [Suspect]
     Indication: HYPERTONIC BLADDER
     Route: 048
     Dates: start: 20091030

REACTIONS (4)
  - NAUSEA [None]
  - PERIPHERAL COLDNESS [None]
  - RASH [None]
  - URINARY TRACT INFECTION [None]
